FAERS Safety Report 18486624 (Version 1)
Quarter: 2020Q4

REPORT INFORMATION
  Report Type: Spontaneous
  Country: US (occurrence: US)
  Receive Date: 20201110
  Receipt Date: 20201110
  Transmission Date: 20210114
  Serious: No
  Sender: FDA-Public Use
  Company Number: US-PFIZER INC-2020439328

PATIENT
  Age: 46 Year
  Sex: Female
  Weight: 76.2 kg

DRUGS (4)
  1. ATIVAN [Concomitant]
     Active Substance: LORAZEPAM
     Dosage: UNK
     Dates: start: 2017, end: 2017
  2. PRISTIQ EXTENDED-RELEASE [Suspect]
     Active Substance: DESVENLAFAXINE SUCCINATE
     Indication: DEPRESSION
     Dosage: 100 MG ONCE A DAY IN THE MORNING)
     Route: 048
     Dates: start: 2013
  3. BUSPAR [Concomitant]
     Active Substance: BUSPIRONE HYDROCHLORIDE
     Dosage: 2 AT A TIME
     Dates: start: 2013
  4. REXULTI [Concomitant]
     Active Substance: BREXPIPRAZOLE
     Dosage: UNK
     Dates: start: 2017, end: 2017

REACTIONS (12)
  - Frustration tolerance decreased [Unknown]
  - Anxiety [Unknown]
  - Nausea [Unknown]
  - Disorientation [Unknown]
  - Dizziness [Unknown]
  - Headache [Unknown]
  - Post-traumatic stress disorder [Unknown]
  - Withdrawal syndrome [Unknown]
  - Therapeutic product effect incomplete [Unknown]
  - Crying [Unknown]
  - Emotional disorder [Unknown]
  - Tremor [Unknown]
